FAERS Safety Report 5964738-7 (Version None)
Quarter: 2008Q4

REPORT INFORMATION
  Report Type: 
  Country: None (occurrence: None)
  Receive Date: 20081125
  Receipt Date: 20080528
  Transmission Date: 20090506
  Serious: No
  Sender: FDA-Public Use
  Company Number: US-AMGEN-US282740

PATIENT
  Sex: Female

DRUGS (5)
  1. ENBREL [Suspect]
     Indication: DRUG USE FOR UNKNOWN INDICATION
     Route: 065
     Dates: start: 20070901
  2. CYMBALTA [Concomitant]
     Route: 065
  3. ASPIRIN [Concomitant]
     Route: 065
  4. CALCIUM [Concomitant]
     Route: 065
  5. MULTI-VITAMINS [Concomitant]
     Route: 065

REACTIONS (5)
  - COUGH [None]
  - HEADACHE [None]
  - OROPHARYNGEAL PAIN [None]
  - SINUS HEADACHE [None]
  - VOMITING [None]
